FAERS Safety Report 5806266-5 (Version None)
Quarter: 2008Q3

REPORT INFORMATION
  Report Type: 
  Country: None (occurrence: None)
  Receive Date: 20080710
  Receipt Date: 20080619
  Transmission Date: 20090109
  Serious: Yes (Other)
  Sender: FDA-Public Use
  Company Number: GB-ABBOTT-08P-167-0461145-00

PATIENT
  Age: 23 Year
  Sex: Male

DRUGS (2)
  1. ERYTHROMYCIN [Suspect]
     Indication: ACNE
     Route: 048
     Dates: start: 20080420, end: 20080527
  2. MESALAMINE [Concomitant]
     Indication: COLITIS
     Dates: start: 20040101

REACTIONS (2)
  - COLITIS [None]
  - RECTAL HAEMORRHAGE [None]
